FAERS Safety Report 15428116 (Version 1)
Quarter: 2018Q3

REPORT INFORMATION
  Report Type: Spontaneous
  Country: US (occurrence: US)
  Receive Date: 20180926
  Receipt Date: 20180926
  Transmission Date: 20181010
  Serious: No
  Sender: FDA-Public Use
  Company Number: US-GLENMARK PHARMACEUTICALS-2018GMK036895

PATIENT

DRUGS (2)
  1. LOSARTAN. [Concomitant]
     Active Substance: LOSARTAN
     Indication: HYPERTENSION
     Dosage: UNK
     Route: 065
  2. DICLOFENAC SODIUM GEL 3% [Suspect]
     Active Substance: DICLOFENAC SODIUM
     Indication: ACTINIC KERATOSIS
     Dosage: UNK UNK, SINGLE
     Route: 061
     Dates: start: 20180801, end: 20180801

REACTIONS (5)
  - Asthma [Recovering/Resolving]
  - Wheezing [Recovering/Resolving]
  - Nasal congestion [Recovering/Resolving]
  - Contraindicated product administered [Unknown]
  - Chest pain [Recovering/Resolving]

NARRATIVE: CASE EVENT DATE: 20180802
